FAERS Safety Report 10470151 (Version 2)
Quarter: 2014Q4

REPORT INFORMATION
  Report Type: Report from Study
  Country: BR (occurrence: BR)
  Receive Date: 20140923
  Receipt Date: 20141022
  Transmission Date: 20150528
  Serious: Yes (Hospitalization)
  Sender: FDA-Public Use
  Company Number: BR-SA-2014SA128202

PATIENT
  Age: 54 Year
  Sex: Female
  Weight: 66 kg

DRUGS (5)
  1. LEVOID [Concomitant]
     Active Substance: LEVOTHYROXINE
     Indication: THYROID DISORDER
     Route: 048
  2. AAS PROTECT [Suspect]
     Active Substance: ASPIRIN
     Route: 065
     Dates: start: 2011, end: 201403
  3. LOSARTAN [Concomitant]
     Active Substance: LOSARTAN
     Indication: HYPERTENSION
     Route: 048
  4. LANTUS [Suspect]
     Active Substance: INSULIN GLARGINE
     Indication: TYPE 2 DIABETES MELLITUS
     Route: 065
     Dates: start: 2001
  5. DEVICE NOS [Concomitant]
     Active Substance: DEVICE
     Indication: DEVICE THERAPY
     Dates: start: 2004

REACTIONS (5)
  - Oedema peripheral [Recovering/Resolving]
  - Pain [Recovering/Resolving]
  - Musculoskeletal stiffness [Recovering/Resolving]
  - Thrombosis [Recovering/Resolving]
  - Limb discomfort [Recovering/Resolving]

NARRATIVE: CASE EVENT DATE: 20140307
